FAERS Safety Report 14479329 (Version 5)
Quarter: 2018Q2

REPORT INFORMATION
  Report Type: Spontaneous
  Country: PT (occurrence: PT)
  Receive Date: 20180202
  Receipt Date: 20180403
  Transmission Date: 20180711
  Serious: Yes (Life-Threatening, Hospitalization, Other)
  Sender: FDA-Public Use
  Company Number: PT-AUROBINDO-AUR-APL-2018-004115

PATIENT
  Age: 23 Year
  Sex: Female

DRUGS (267)
  1. CETIRIZINE [Suspect]
     Active Substance: CETIRIZINE HYDROCHLORIDE
     Indication: ASTHMA
  2. DEFLAZACORTE TABLETS [Suspect]
     Active Substance: DEFLAZACORT
     Indication: URTICARIA CHRONIC
     Route: 065
  3. IBUPROFEN. [Suspect]
     Active Substance: IBUPROFEN
     Indication: PRODUCT USED FOR UNKNOWN INDICATION
     Route: 065
  4. IBUPROFEN. [Suspect]
     Active Substance: IBUPROFEN
     Dosage: UNK ()
     Route: 065
  5. IBUPROFEN. [Suspect]
     Active Substance: IBUPROFEN
     Dosage: UNK ()
     Route: 065
  6. PARACETAMOL [Suspect]
     Active Substance: ACETAMINOPHEN
     Dosage: UNK ()
     Route: 065
  7. MONTELUKAST [Suspect]
     Active Substance: MONTELUKAST SODIUM
     Indication: URTICARIA CHRONIC
     Dosage: ()
     Route: 065
  8. MONTELUKAST [Suspect]
     Active Substance: MONTELUKAST SODIUM
     Dosage: DPT ()
     Route: 048
  9. MONTELUKAST [Suspect]
     Active Substance: MONTELUKAST SODIUM
     Dosage: DPT ()
     Route: 048
  10. MONTELUKAST [Suspect]
     Active Substance: MONTELUKAST SODIUM
     Dosage: DPT ()
     Route: 048
  11. HYDROXYZINE [Suspect]
     Active Substance: HYDROXYZINE HYDROCHLORIDE
     Indication: PRODUCT USED FOR UNKNOWN INDICATION
     Dosage: ()
     Route: 065
  12. HYDROXYZINE [Suspect]
     Active Substance: HYDROXYZINE HYDROCHLORIDE
     Dosage: UNK ()
     Route: 065
  13. HYDROXYZINE [Suspect]
     Active Substance: HYDROXYZINE HYDROCHLORIDE
     Dosage: ()
     Route: 065
  14. EBASTINE [Suspect]
     Active Substance: EBASTINE
     Dosage: ()
     Route: 065
  15. HYDROCORTISONE. [Suspect]
     Active Substance: HYDROCORTISONE
     Indication: PRODUCT USED FOR UNKNOWN INDICATION
     Route: 065
  16. HYDROCORTISONE. [Suspect]
     Active Substance: HYDROCORTISONE
     Dosage: ()
     Route: 048
  17. HYDROCORTISONE. [Suspect]
     Active Substance: HYDROCORTISONE
     Dosage: UNK ()
     Route: 062
  18. HYDROCORTISONE. [Suspect]
     Active Substance: HYDROCORTISONE
     Dosage: ()
     Route: 062
  19. METHYLPREDNISOLONE. [Suspect]
     Active Substance: METHYLPREDNISOLONE
     Indication: PRODUCT USED FOR UNKNOWN INDICATION
     Dosage: ()
     Route: 065
  20. DEXAMETHASON SODIUM PHOSPHATE [Suspect]
     Active Substance: DEXAMETHASONE SODIUM PHOSPHATE
     Dosage: ()
     Route: 065
  21. CLEMASTINE FUMARATE. [Suspect]
     Active Substance: CLEMASTINE FUMARATE
     Indication: PRODUCT USED FOR UNKNOWN INDICATION
     Dosage: ()
     Route: 065
  22. CLEMASTINE FUMARATE. [Suspect]
     Active Substance: CLEMASTINE FUMARATE
     Dosage: UNK ()
     Route: 065
  23. CLEMASTINE FUMARATE. [Suspect]
     Active Substance: CLEMASTINE FUMARATE
     Dosage: UNK ()
     Route: 065
  24. OMALIZUMAB. [Suspect]
     Active Substance: OMALIZUMAB
     Indication: PRODUCT USED FOR UNKNOWN INDICATION
     Route: 065
  25. OMALIZUMAB. [Suspect]
     Active Substance: OMALIZUMAB
     Route: 065
  26. OMALIZUMAB. [Suspect]
     Active Substance: OMALIZUMAB
     Dosage: 150 MG, UNK
     Route: 065
  27. OMALIZUMAB. [Suspect]
     Active Substance: OMALIZUMAB
     Dosage: 300 MG, UNK
     Route: 065
  28. OMALIZUMAB. [Suspect]
     Active Substance: OMALIZUMAB
     Dosage: 300 MG, UNK
     Route: 065
  29. ZYRTEC [Suspect]
     Active Substance: CETIRIZINE HYDROCHLORIDE
     Dosage: ()
     Route: 065
  30. CLARITINE [Suspect]
     Active Substance: LORATADINE
     Dosage: UNK ()
     Route: 065
  31. DESLORATADINE +PHARMA [Suspect]
     Active Substance: DESLORATADINE
     Indication: ASTHMA
     Dosage: ()
     Route: 065
  32. DESLORATADINE +PHARMA [Suspect]
     Active Substance: DESLORATADINE
     Dosage: UNK ()
     Route: 065
  33. IBUPROFEN. [Suspect]
     Active Substance: IBUPROFEN
     Dosage: ()
     Route: 065
  34. IBUPROFEN. [Suspect]
     Active Substance: IBUPROFEN
     Dosage: ()
     Route: 065
  35. LORATADINE TABLET [Suspect]
     Active Substance: LORATADINE
     Indication: ASTHMA
     Route: 065
  36. PARACETAMOL [Suspect]
     Active Substance: ACETAMINOPHEN
     Dosage: ()
     Route: 065
  37. MONTELUKAST [Suspect]
     Active Substance: MONTELUKAST SODIUM
     Dosage: UNK ()
     Route: 048
  38. MONTELUKAST [Suspect]
     Active Substance: MONTELUKAST SODIUM
     Dosage: DPT ()
     Route: 048
  39. MONTELUKAST [Suspect]
     Active Substance: MONTELUKAST SODIUM
     Dosage: DPT ()
     Route: 048
  40. MONTELUKAST [Suspect]
     Active Substance: MONTELUKAST SODIUM
     Dosage: UNK ()
     Route: 065
  41. HYDROXYZINE [Suspect]
     Active Substance: HYDROXYZINE HYDROCHLORIDE
     Dosage: UNK ()
     Route: 065
  42. EBASTINE [Suspect]
     Active Substance: EBASTINE
     Dosage: UNK ()
     Route: 065
  43. HYDROCORTISONE. [Suspect]
     Active Substance: HYDROCORTISONE
     Indication: PRODUCT USED FOR UNKNOWN INDICATION
     Dosage: UNK ()
     Route: 048
  44. HYDROCORTISONE. [Suspect]
     Active Substance: HYDROCORTISONE
     Dosage: ()
     Route: 062
  45. HYDROCORTISONE. [Suspect]
     Active Substance: HYDROCORTISONE
     Dosage: ()
     Route: 062
  46. HYDROCORTISONE. [Suspect]
     Active Substance: HYDROCORTISONE
     Dosage: UNK ()
     Route: 065
  47. HYDROCORTISONE. [Suspect]
     Active Substance: HYDROCORTISONE
     Dosage: ()
     Route: 062
  48. FLURBIPROFEN. [Suspect]
     Active Substance: FLURBIPROFEN
     Indication: PRODUCT USED FOR UNKNOWN INDICATION
     Route: 065
  49. FLURBIPROFEN. [Suspect]
     Active Substance: FLURBIPROFEN
     Indication: PRODUCT USED FOR UNKNOWN INDICATION
     Dosage: ()
     Route: 065
  50. FLURBIPROFEN. [Suspect]
     Active Substance: FLURBIPROFEN
     Dosage: ()
     Route: 065
  51. FLURBIPROFEN. [Suspect]
     Active Substance: FLURBIPROFEN
     Dosage: UNK ()
     Route: 065
  52. FLURBIPROFEN. [Suspect]
     Active Substance: FLURBIPROFEN
     Dosage: ()
     Route: 065
  53. FLURBIPROFEN. [Suspect]
     Active Substance: FLURBIPROFEN
     Dosage: UNK ()
     Route: 065
  54. FLURBIPROFEN. [Suspect]
     Active Substance: FLURBIPROFEN
     Dosage: UNK ()
     Route: 065
  55. METHYLPREDNISOLONE. [Suspect]
     Active Substance: METHYLPREDNISOLONE
     Dosage: ()
     Route: 062
  56. METHYLPREDNISOLONE. [Suspect]
     Active Substance: METHYLPREDNISOLONE
     Dosage: UNK ()
     Route: 062
  57. DEXAMETHASON SODIUM PHOSPHATE [Suspect]
     Active Substance: DEXAMETHASONE SODIUM PHOSPHATE
     Dosage: ()
     Route: 065
  58. DEXAMETHASON SODIUM PHOSPHATE [Suspect]
     Active Substance: DEXAMETHASONE SODIUM PHOSPHATE
     Dosage: UNK ()
     Route: 065
  59. CLEMASTINE FUMARATE. [Suspect]
     Active Substance: CLEMASTINE FUMARATE
     Dosage: ()
     Route: 065
  60. OMALIZUMAB. [Suspect]
     Active Substance: OMALIZUMAB
     Indication: URTICARIA CHRONIC
     Dosage: 150 MG, UNK
     Route: 065
  61. OMALIZUMAB. [Suspect]
     Active Substance: OMALIZUMAB
     Dosage: 300 MG, UNK
     Route: 065
  62. OMALIZUMAB. [Suspect]
     Active Substance: OMALIZUMAB
     Route: 065
  63. OMALIZUMAB. [Suspect]
     Active Substance: OMALIZUMAB
     Dosage: 150 MG, UNK
     Route: 065
  64. OMALIZUMAB. [Suspect]
     Active Substance: OMALIZUMAB
     Dosage: 300 MG, UNK
     Route: 065
  65. OMALIZUMAB. [Suspect]
     Active Substance: OMALIZUMAB
     Route: 065
  66. ZYRTEC [Suspect]
     Active Substance: CETIRIZINE HYDROCHLORIDE
     Dosage: UNK ()
     Route: 065
  67. IBUPROFEN. [Suspect]
     Active Substance: IBUPROFEN
     Dosage: ()
     Route: 065
  68. PARACETAMOL [Suspect]
     Active Substance: ACETAMINOPHEN
     Dosage: ()
     Route: 065
  69. MONTELUKAST [Suspect]
     Active Substance: MONTELUKAST SODIUM
     Indication: ASTHMA
     Dosage: UNK ()
     Route: 048
  70. MONTELUKAST [Suspect]
     Active Substance: MONTELUKAST SODIUM
     Dosage: UNK ()
     Route: 048
  71. HYDROXYZINE [Suspect]
     Active Substance: HYDROXYZINE HYDROCHLORIDE
     Indication: URTICARIA CHRONIC
     Dosage: ()
     Route: 065
  72. HYDROXYZINE [Suspect]
     Active Substance: HYDROXYZINE HYDROCHLORIDE
     Dosage: ()
     Route: 065
  73. HYDROXYZINE [Suspect]
     Active Substance: HYDROXYZINE HYDROCHLORIDE
     Dosage: UNK ()
     Route: 065
  74. HYDROXYZINE [Suspect]
     Active Substance: HYDROXYZINE HYDROCHLORIDE
     Dosage: UNK ()
     Route: 065
  75. HYDROXYZINE [Suspect]
     Active Substance: HYDROXYZINE HYDROCHLORIDE
     Dosage: UNK ()
     Route: 065
  76. HYDROCORTISONE. [Suspect]
     Active Substance: HYDROCORTISONE
     Dosage: ()
     Route: 062
  77. HYDROCORTISONE. [Suspect]
     Active Substance: HYDROCORTISONE
     Dosage: UNK ()
     Route: 062
  78. HYDROCORTISONE. [Suspect]
     Active Substance: HYDROCORTISONE
     Dosage: UNK ()
     Route: 062
  79. HYDROCORTISONE. [Suspect]
     Active Substance: HYDROCORTISONE
     Dosage: UNK ()
     Route: 048
  80. HYDROCORTISONE. [Suspect]
     Active Substance: HYDROCORTISONE
     Dosage: UNK ()
     Route: 048
  81. HYDROCORTISONE. [Suspect]
     Active Substance: HYDROCORTISONE
     Dosage: ()
     Route: 048
  82. HYDROCORTISONE. [Suspect]
     Active Substance: HYDROCORTISONE
     Dosage: ()
     Route: 048
  83. HYDROCORTISONE. [Suspect]
     Active Substance: HYDROCORTISONE
     Dosage: UNKNOWN ()
     Route: 065
  84. HYDROCORTISONE. [Suspect]
     Active Substance: HYDROCORTISONE
     Dosage: UNK ()
     Route: 048
  85. METHYLPREDNISOLONE. [Suspect]
     Active Substance: METHYLPREDNISOLONE
     Dosage: ()
     Route: 062
  86. METHYLPREDNISOLONE. [Suspect]
     Active Substance: METHYLPREDNISOLONE
     Dosage: UNKNOWN ()
     Route: 065
  87. DEXAMETHASON SODIUM PHOSPHATE [Suspect]
     Active Substance: DEXAMETHASONE SODIUM PHOSPHATE
     Indication: URTICARIA CHRONIC
     Dosage: ()
     Route: 065
  88. DEXAMETHASON SODIUM PHOSPHATE [Suspect]
     Active Substance: DEXAMETHASONE SODIUM PHOSPHATE
     Dosage: ()
     Route: 065
  89. DEXAMETHASON SODIUM PHOSPHATE [Suspect]
     Active Substance: DEXAMETHASONE SODIUM PHOSPHATE
     Dosage: UNK ()
     Route: 065
  90. CLEMASTINE FUMARATE. [Suspect]
     Active Substance: CLEMASTINE FUMARATE
     Indication: ASTHMA
     Dosage: UNK ()
     Route: 065
  91. CLEMASTINE FUMARATE. [Suspect]
     Active Substance: CLEMASTINE FUMARATE
     Indication: URTICARIA CHRONIC
     Dosage: ()
     Route: 065
  92. OMALIZUMAB. [Suspect]
     Active Substance: OMALIZUMAB
     Indication: ASTHMA
     Dosage: 300 MG, UNK
     Route: 065
  93. OMALIZUMAB. [Suspect]
     Active Substance: OMALIZUMAB
     Route: 065
  94. OMALIZUMAB. [Suspect]
     Active Substance: OMALIZUMAB
     Dosage: 300 MG, UNK
     Route: 065
  95. OMALIZUMAB. [Suspect]
     Active Substance: OMALIZUMAB
     Dosage: 300 MG, UNK
     Route: 065
  96. OMALIZUMAB. [Suspect]
     Active Substance: OMALIZUMAB
     Dosage: 300 MG, UNK
     Route: 065
  97. ZYRTEC [Suspect]
     Active Substance: CETIRIZINE HYDROCHLORIDE
     Dosage: ()
     Route: 065
  98. CLARITINE [Suspect]
     Active Substance: LORATADINE
     Indication: PRODUCT USED FOR UNKNOWN INDICATION
     Dosage: ()
     Route: 065
  99. CLARITINE [Suspect]
     Active Substance: LORATADINE
     Dosage: UNK ()
     Route: 065
  100. CETIRIZINE [Suspect]
     Active Substance: CETIRIZINE HYDROCHLORIDE
     Indication: URTICARIA CHRONIC
  101. DEFLAZACORTE TABLETS [Suspect]
     Active Substance: DEFLAZACORT
     Indication: ASTHMA
     Dosage: UNK
     Route: 048
  102. IBUPROFEN. [Suspect]
     Active Substance: IBUPROFEN
     Indication: ASTHMA
     Dosage: ()
     Route: 065
  103. IBUPROFEN. [Suspect]
     Active Substance: IBUPROFEN
     Dosage: ()
     Route: 065
  104. IBUPROFEN. [Suspect]
     Active Substance: IBUPROFEN
     Dosage: ()
     Route: 065
  105. IBUPROFEN. [Suspect]
     Active Substance: IBUPROFEN
     Dosage: UNK ()
     Route: 065
  106. IBUPROFEN. [Suspect]
     Active Substance: IBUPROFEN
     Dosage: UNK ()
     Route: 065
  107. IBUPROFEN. [Suspect]
     Active Substance: IBUPROFEN
     Dosage: UNK ()
     Route: 065
  108. IBUPROFEN. [Suspect]
     Active Substance: IBUPROFEN
     Dosage: UNK ()
     Route: 065
  109. PARACETAMOL [Suspect]
     Active Substance: ACETAMINOPHEN
     Dosage: UNK ()
     Route: 065
  110. PARACETAMOL [Suspect]
     Active Substance: ACETAMINOPHEN
     Dosage: ()
     Route: 065
  111. MONTELUKAST [Suspect]
     Active Substance: MONTELUKAST SODIUM
     Dosage: DPT ()
     Route: 048
  112. MONTELUKAST [Suspect]
     Active Substance: MONTELUKAST SODIUM
     Dosage: DPT ()
     Route: 048
  113. HYDROXYZINE [Suspect]
     Active Substance: HYDROXYZINE HYDROCHLORIDE
     Dosage: ()
     Route: 065
  114. HYDROXYZINE [Suspect]
     Active Substance: HYDROXYZINE HYDROCHLORIDE
     Dosage: ()
     Route: 065
  115. EBASTINE [Suspect]
     Active Substance: EBASTINE
     Indication: PRODUCT USED FOR UNKNOWN INDICATION
     Dosage: ()
     Route: 065
  116. EBASTINE [Suspect]
     Active Substance: EBASTINE
     Dosage: ()
     Route: 065
  117. HYDROCORTISONE. [Suspect]
     Active Substance: HYDROCORTISONE
     Dosage: ()
     Route: 062
  118. FLURBIPROFEN. [Suspect]
     Active Substance: FLURBIPROFEN
     Indication: ASTHMA
     Dosage: ()
     Route: 065
  119. FLURBIPROFEN. [Suspect]
     Active Substance: FLURBIPROFEN
     Dosage: ()
     Route: 065
  120. FLURBIPROFEN. [Suspect]
     Active Substance: FLURBIPROFEN
     Dosage: ()
     Route: 065
  121. METHYLPREDNISOLONE. [Suspect]
     Active Substance: METHYLPREDNISOLONE
     Dosage: UNKNOWN ()
     Route: 062
  122. DEXAMETHASON SODIUM PHOSPHATE [Suspect]
     Active Substance: DEXAMETHASONE SODIUM PHOSPHATE
     Indication: PRODUCT USED FOR UNKNOWN INDICATION
     Dosage: ()
     Route: 065
  123. DEXAMETHASON SODIUM PHOSPHATE [Suspect]
     Active Substance: DEXAMETHASONE SODIUM PHOSPHATE
     Dosage: UNK ()
     Route: 065
  124. DEXAMETHASON SODIUM PHOSPHATE [Suspect]
     Active Substance: DEXAMETHASONE SODIUM PHOSPHATE
     Dosage: UNK ()
     Route: 065
  125. CLEMASTINE FUMARATE. [Suspect]
     Active Substance: CLEMASTINE FUMARATE
     Dosage: UNK ()
     Route: 065
  126. CLEMASTINE FUMARATE. [Suspect]
     Active Substance: CLEMASTINE FUMARATE
     Dosage: ()
     Route: 065
  127. CLEMASTINE FUMARATE. [Suspect]
     Active Substance: CLEMASTINE FUMARATE
     Dosage: UNK ()
     Route: 065
  128. CLEMASTINE FUMARATE. [Suspect]
     Active Substance: CLEMASTINE FUMARATE
     Dosage: ()
     Route: 065
  129. OMALIZUMAB. [Suspect]
     Active Substance: OMALIZUMAB
     Indication: ANGIOEDEMA
     Route: 065
  130. OMALIZUMAB. [Suspect]
     Active Substance: OMALIZUMAB
     Route: 065
  131. ZYRTEC [Suspect]
     Active Substance: CETIRIZINE HYDROCHLORIDE
     Indication: ASTHMA
     Dosage: UNK ()
     Route: 065
  132. ZYRTEC [Suspect]
     Active Substance: CETIRIZINE HYDROCHLORIDE
     Dosage: ()
     Route: 065
  133. ZYRTEC [Suspect]
     Active Substance: CETIRIZINE HYDROCHLORIDE
     Dosage: ()
     Route: 065
  134. CLARITINE [Suspect]
     Active Substance: LORATADINE
     Indication: ASTHMA
     Dosage: UNK ()
     Route: 065
  135. CLARITINE [Suspect]
     Active Substance: LORATADINE
     Indication: URTICARIA CHRONIC
     Dosage: UNK ()
     Route: 065
  136. IBUPROFEN. [Suspect]
     Active Substance: IBUPROFEN
     Dosage: UNK ()
     Route: 065
  137. PARACETAMOL [Suspect]
     Active Substance: ACETAMINOPHEN
     Dosage: ()
     Route: 065
  138. PARACETAMOL [Suspect]
     Active Substance: ACETAMINOPHEN
     Dosage: UNK ()
     Route: 065
  139. MONTELUKAST [Suspect]
     Active Substance: MONTELUKAST SODIUM
     Dosage: ()
     Route: 065
  140. MONTELUKAST [Suspect]
     Active Substance: MONTELUKAST SODIUM
     Dosage: ()
     Route: 065
  141. MONTELUKAST [Suspect]
     Active Substance: MONTELUKAST SODIUM
     Dosage: DPT ()
     Route: 048
  142. EBASTINE [Suspect]
     Active Substance: EBASTINE
     Dosage: UNK ()
     Route: 065
  143. EBASTINE [Suspect]
     Active Substance: EBASTINE
     Dosage: UNK ()
     Route: 065
  144. EBASTINE [Suspect]
     Active Substance: EBASTINE
     Dosage: ()
     Route: 065
  145. EBASTINE [Suspect]
     Active Substance: EBASTINE
     Dosage: UNK ()
     Route: 065
  146. HYDROCORTISONE. [Suspect]
     Active Substance: HYDROCORTISONE
     Dosage: ()
     Route: 048
  147. HYDROCORTISONE. [Suspect]
     Active Substance: HYDROCORTISONE
     Dosage: UNK ()
     Route: 062
  148. HYDROCORTISONE. [Suspect]
     Active Substance: HYDROCORTISONE
     Dosage: ()
     Route: 062
  149. HYDROCORTISONE. [Suspect]
     Active Substance: HYDROCORTISONE
     Dosage: UNK ()
     Route: 062
  150. FLURBIPROFEN. [Suspect]
     Active Substance: FLURBIPROFEN
     Dosage: ()
     Route: 065
  151. FLURBIPROFEN. [Suspect]
     Active Substance: FLURBIPROFEN
     Dosage: UNK ()
     Route: 065
  152. FLURBIPROFEN. [Suspect]
     Active Substance: FLURBIPROFEN
     Dosage: UNK ()
     Route: 065
  153. METHYLPREDNISOLONE. [Suspect]
     Active Substance: METHYLPREDNISOLONE
     Indication: PRODUCT USED FOR UNKNOWN INDICATION
     Route: 065
  154. METHYLPREDNISOLONE. [Suspect]
     Active Substance: METHYLPREDNISOLONE
     Dosage: UNKNOWN ()
     Route: 062
  155. METHYLPREDNISOLONE. [Suspect]
     Active Substance: METHYLPREDNISOLONE
     Dosage: UNKNOWN ()
     Route: 062
  156. METHYLPREDNISOLONE. [Suspect]
     Active Substance: METHYLPREDNISOLONE
     Dosage: UNK ()
     Route: 062
  157. METHYLPREDNISOLONE. [Suspect]
     Active Substance: METHYLPREDNISOLONE
     Dosage: UNKNOWN ()
     Route: 062
  158. CLEMASTINE FUMARATE. [Suspect]
     Active Substance: CLEMASTINE FUMARATE
     Dosage: ()
     Route: 065
  159. OMALIZUMAB. [Suspect]
     Active Substance: OMALIZUMAB
     Dosage: 150 MG, UNK
     Route: 065
  160. OMALIZUMAB. [Suspect]
     Active Substance: OMALIZUMAB
     Dosage: 150 MG, UNK
     Route: 065
  161. OMALIZUMAB. [Suspect]
     Active Substance: OMALIZUMAB
     Route: 065
  162. OMALIZUMAB. [Suspect]
     Active Substance: OMALIZUMAB
     Dosage: 300 MG, UNK
     Route: 065
  163. ZYRTEC [Suspect]
     Active Substance: CETIRIZINE HYDROCHLORIDE
     Dosage: UNK ()
     Route: 065
  164. CLARITINE [Suspect]
     Active Substance: LORATADINE
     Dosage: UNK ()
     Route: 065
  165. DESLORATADINE +PHARMA [Suspect]
     Active Substance: DESLORATADINE
     Indication: URTICARIA CHRONIC
     Dosage: UNK ()
     Route: 048
  166. DESLORATADINE +PHARMA [Suspect]
     Active Substance: DESLORATADINE
     Dosage: ()
     Route: 065
  167. IBUPROFEN. [Suspect]
     Active Substance: IBUPROFEN
     Dosage: ()
     Route: 065
  168. IBUPROFEN. [Suspect]
     Active Substance: IBUPROFEN
     Dosage: UNK ()
     Route: 065
  169. LORATADINE TABLET [Suspect]
     Active Substance: LORATADINE
     Dosage: ()
  170. PARACETAMOL [Suspect]
     Active Substance: ACETAMINOPHEN
     Indication: ASTHMA
     Dosage: ()
     Route: 065
  171. PARACETAMOL [Suspect]
     Active Substance: ACETAMINOPHEN
     Indication: PRODUCT USED FOR UNKNOWN INDICATION
     Dosage: ()
     Route: 065
  172. PARACETAMOL [Suspect]
     Active Substance: ACETAMINOPHEN
     Dosage: ()
     Route: 065
  173. PARACETAMOL [Suspect]
     Active Substance: ACETAMINOPHEN
     Dosage: UNK ()
     Route: 065
  174. MONTELUKAST [Suspect]
     Active Substance: MONTELUKAST SODIUM
     Dosage: UNK ()
     Route: 048
  175. MONTELUKAST [Suspect]
     Active Substance: MONTELUKAST SODIUM
     Dosage: ()
     Route: 065
  176. HYDROXYZINE [Suspect]
     Active Substance: HYDROXYZINE HYDROCHLORIDE
     Indication: ASTHMA
     Dosage: UNK ()
     Route: 065
  177. HYDROXYZINE [Suspect]
     Active Substance: HYDROXYZINE HYDROCHLORIDE
     Dosage: ()
     Route: 065
  178. HYDROXYZINE [Suspect]
     Active Substance: HYDROXYZINE HYDROCHLORIDE
     Dosage: ()
     Route: 065
  179. HYDROXYZINE [Suspect]
     Active Substance: HYDROXYZINE HYDROCHLORIDE
     Dosage: ()
     Route: 065
  180. EBASTINE [Suspect]
     Active Substance: EBASTINE
     Dosage: ()
     Route: 065
  181. HYDROCORTISONE. [Suspect]
     Active Substance: HYDROCORTISONE
     Indication: URTICARIA CHRONIC
     Dosage: UNK ()
     Route: 062
  182. HYDROCORTISONE. [Suspect]
     Active Substance: HYDROCORTISONE
     Dosage: ()
     Route: 062
  183. HYDROCORTISONE. [Suspect]
     Active Substance: HYDROCORTISONE
     Dosage: ()
     Route: 048
  184. HYDROCORTISONE. [Suspect]
     Active Substance: HYDROCORTISONE
     Dosage: UNKNOWN ()
     Route: 048
  185. FLURBIPROFEN. [Suspect]
     Active Substance: FLURBIPROFEN
     Dosage: ()
     Route: 065
  186. FLURBIPROFEN. [Suspect]
     Active Substance: FLURBIPROFEN
     Dosage: UNK ()
     Route: 065
  187. FLURBIPROFEN. [Suspect]
     Active Substance: FLURBIPROFEN
     Dosage: ()
     Route: 065
  188. FLURBIPROFEN. [Suspect]
     Active Substance: FLURBIPROFEN
     Dosage: UNK ()
     Route: 065
  189. FLURBIPROFEN. [Suspect]
     Active Substance: FLURBIPROFEN
     Dosage: UNK ()
     Route: 065
  190. METHYLPREDNISOLONE. [Suspect]
     Active Substance: METHYLPREDNISOLONE
     Indication: URTICARIA CHRONIC
     Dosage: UNK ()
     Route: 062
  191. METHYLPREDNISOLONE. [Suspect]
     Active Substance: METHYLPREDNISOLONE
     Indication: ASTHMA
     Dosage: ()
     Route: 062
  192. METHYLPREDNISOLONE. [Suspect]
     Active Substance: METHYLPREDNISOLONE
     Dosage: UNKNOWN ()
     Route: 065
  193. METHYLPREDNISOLONE. [Suspect]
     Active Substance: METHYLPREDNISOLONE
     Dosage: ()
     Route: 065
  194. METHYLPREDNISOLONE. [Suspect]
     Active Substance: METHYLPREDNISOLONE
     Dosage: UNK ()
     Route: 062
  195. DEXAMETHASON SODIUM PHOSPHATE [Suspect]
     Active Substance: DEXAMETHASONE SODIUM PHOSPHATE
     Dosage: ()
     Route: 065
  196. DEXAMETHASON SODIUM PHOSPHATE [Suspect]
     Active Substance: DEXAMETHASONE SODIUM PHOSPHATE
     Dosage: UNK ()
     Route: 065
  197. CLEMASTINE FUMARATE. [Suspect]
     Active Substance: CLEMASTINE FUMARATE
     Dosage: ()
     Route: 065
  198. CLEMASTINE FUMARATE. [Suspect]
     Active Substance: CLEMASTINE FUMARATE
     Dosage: UNK ()
     Route: 065
  199. CLEMASTINE FUMARATE. [Suspect]
     Active Substance: CLEMASTINE FUMARATE
     Dosage: ()
     Route: 065
  200. OMALIZUMAB. [Suspect]
     Active Substance: OMALIZUMAB
     Dosage: 300 MG, UNKNOWN
     Route: 065
  201. OMALIZUMAB. [Suspect]
     Active Substance: OMALIZUMAB
     Dosage: 300 MG, UNK
     Route: 065
  202. OMALIZUMAB. [Suspect]
     Active Substance: OMALIZUMAB
     Dosage: 300 MG, UNKNOWN
     Route: 065
  203. OMALIZUMAB. [Suspect]
     Active Substance: OMALIZUMAB
     Route: 065
  204. OMALIZUMAB. [Suspect]
     Active Substance: OMALIZUMAB
     Dosage: 150 MG, UNK
     Route: 065
  205. ZYRTEC [Suspect]
     Active Substance: CETIRIZINE HYDROCHLORIDE
     Dosage: ()
     Route: 065
  206. ZYRTEC [Suspect]
     Active Substance: CETIRIZINE HYDROCHLORIDE
     Dosage: UNK ()
     Route: 065
  207. CETIRIZINE [Suspect]
     Active Substance: CETIRIZINE HYDROCHLORIDE
     Indication: PRODUCT USED FOR UNKNOWN INDICATION
     Route: 065
  208. DEFLAZACORTE TABLETS [Suspect]
     Active Substance: DEFLAZACORT
     Dosage: UNK
     Route: 062
  209. IBUPROFEN. [Suspect]
     Active Substance: IBUPROFEN
     Dosage: UNK ()
     Route: 065
  210. PARACETAMOL [Suspect]
     Active Substance: ACETAMINOPHEN
     Indication: URTICARIA CHRONIC
     Dosage: ()
     Route: 065
  211. PARACETAMOL [Suspect]
     Active Substance: ACETAMINOPHEN
     Dosage: UNK ()
     Route: 065
  212. MONTELUKAST [Suspect]
     Active Substance: MONTELUKAST SODIUM
     Indication: DRUG PROVOCATION TEST
     Dosage: DPT ()
     Route: 048
  213. MONTELUKAST [Suspect]
     Active Substance: MONTELUKAST SODIUM
     Dosage: DPT ()
     Route: 048
  214. MONTELUKAST [Suspect]
     Active Substance: MONTELUKAST SODIUM
     Dosage: UNK ()
     Route: 048
  215. HYDROXYZINE [Suspect]
     Active Substance: HYDROXYZINE HYDROCHLORIDE
     Dosage: ()
     Route: 065
  216. HYDROXYZINE [Suspect]
     Active Substance: HYDROXYZINE HYDROCHLORIDE
     Dosage: UNK ()
     Route: 065
  217. EBASTINE [Suspect]
     Active Substance: EBASTINE
     Indication: ASTHMA
     Dosage: ()
     Route: 065
  218. EBASTINE [Suspect]
     Active Substance: EBASTINE
     Dosage: ()
     Route: 065
  219. EBASTINE [Suspect]
     Active Substance: EBASTINE
     Dosage: ()
     Route: 065
  220. EBASTINE [Suspect]
     Active Substance: EBASTINE
     Dosage: UNK ()
     Route: 065
  221. HYDROCORTISONE. [Suspect]
     Active Substance: HYDROCORTISONE
     Indication: ASTHMA
     Dosage: ()
     Route: 062
  222. HYDROCORTISONE. [Suspect]
     Active Substance: HYDROCORTISONE
     Dosage: ()
     Route: 048
  223. HYDROCORTISONE. [Suspect]
     Active Substance: HYDROCORTISONE
     Dosage: UNK ()
     Route: 048
  224. HYDROCORTISONE. [Suspect]
     Active Substance: HYDROCORTISONE
     Dosage: ()
     Route: 062
  225. HYDROCORTISONE. [Suspect]
     Active Substance: HYDROCORTISONE
     Dosage: ()
     Route: 062
  226. HYDROCORTISONE. [Suspect]
     Active Substance: HYDROCORTISONE
     Dosage: ()
     Route: 062
  227. METHYLPREDNISOLONE. [Suspect]
     Active Substance: METHYLPREDNISOLONE
     Dosage: ()
     Route: 062
  228. METHYLPREDNISOLONE. [Suspect]
     Active Substance: METHYLPREDNISOLONE
     Dosage: UNK ()
     Route: 065
  229. DEXAMETHASON SODIUM PHOSPHATE [Suspect]
     Active Substance: DEXAMETHASONE SODIUM PHOSPHATE
     Indication: ASTHMA
     Dosage: ()
     Route: 065
  230. DEXAMETHASON SODIUM PHOSPHATE [Suspect]
     Active Substance: DEXAMETHASONE SODIUM PHOSPHATE
     Dosage: ()
     Route: 065
  231. DEXAMETHASON SODIUM PHOSPHATE [Suspect]
     Active Substance: DEXAMETHASONE SODIUM PHOSPHATE
     Dosage: ()
     Route: 065
  232. DEXAMETHASON SODIUM PHOSPHATE [Suspect]
     Active Substance: DEXAMETHASONE SODIUM PHOSPHATE
     Dosage: UNK ()
     Route: 065
  233. CLEMASTINE FUMARATE. [Suspect]
     Active Substance: CLEMASTINE FUMARATE
     Dosage: ()
     Route: 065
  234. CLEMASTINE FUMARATE. [Suspect]
     Active Substance: CLEMASTINE FUMARATE
     Dosage: UNK ()
     Route: 065
  235. OMALIZUMAB. [Suspect]
     Active Substance: OMALIZUMAB
     Route: 065
  236. OMALIZUMAB. [Suspect]
     Active Substance: OMALIZUMAB
     Dosage: 150 MG, UNK
     Route: 065
  237. OMALIZUMAB. [Suspect]
     Active Substance: OMALIZUMAB
     Dosage: 300 MG, UNKNOWN
     Route: 065
  238. OMALIZUMAB. [Suspect]
     Active Substance: OMALIZUMAB
     Dosage: 300 MG, UNKNOWN
     Route: 065
  239. OMALIZUMAB. [Suspect]
     Active Substance: OMALIZUMAB
     Dosage: UNK ()
     Route: 065
  240. IBUPROFEN. [Suspect]
     Active Substance: IBUPROFEN
     Indication: URTICARIA CHRONIC
     Dosage: ()
     Route: 065
  241. IBUPROFEN. [Suspect]
     Active Substance: IBUPROFEN
     Dosage: ()
     Route: 065
  242. LORATADINE TABLET [Suspect]
     Active Substance: LORATADINE
     Dosage: ()
  243. LORATADINE TABLET [Suspect]
     Active Substance: LORATADINE
     Dosage: UNK ()
     Route: 065
  244. PARACETAMOL [Suspect]
     Active Substance: ACETAMINOPHEN
     Dosage: UNK ()
     Route: 065
  245. PARACETAMOL [Suspect]
     Active Substance: ACETAMINOPHEN
     Dosage: UNK ()
     Route: 065
  246. MONTELUKAST [Suspect]
     Active Substance: MONTELUKAST SODIUM
     Dosage: UNK ()
     Route: 048
  247. HYDROXYZINE [Suspect]
     Active Substance: HYDROXYZINE HYDROCHLORIDE
     Dosage: ()
     Route: 065
  248. EBASTINE [Suspect]
     Active Substance: EBASTINE
     Indication: URTICARIA CHRONIC
     Dosage: UNK ()
     Route: 065
  249. EBASTINE [Suspect]
     Active Substance: EBASTINE
     Dosage: ()
     Route: 065
  250. EBASTINE [Suspect]
     Active Substance: EBASTINE
     Dosage: UNK ()
     Route: 065
  251. EBASTINE [Suspect]
     Active Substance: EBASTINE
     Dosage: ()
     Route: 065
  252. HYDROCORTISONE. [Suspect]
     Active Substance: HYDROCORTISONE
     Dosage: UNK ()
     Route: 048
  253. HYDROCORTISONE. [Suspect]
     Active Substance: HYDROCORTISONE
     Dosage: UNK ()
     Route: 062
  254. FLURBIPROFEN. [Suspect]
     Active Substance: FLURBIPROFEN
     Indication: URTICARIA CHRONIC
     Dosage: ()
     Route: 065
  255. METHYLPREDNISOLONE. [Suspect]
     Active Substance: METHYLPREDNISOLONE
     Dosage: UNKNOWN ()
     Route: 065
  256. METHYLPREDNISOLONE. [Suspect]
     Active Substance: METHYLPREDNISOLONE
     Dosage: UNKNOWN ()
     Route: 065
  257. METHYLPREDNISOLONE. [Suspect]
     Active Substance: METHYLPREDNISOLONE
     Dosage: UNKNOWN ()
     Route: 062
  258. DEXAMETHASON SODIUM PHOSPHATE [Suspect]
     Active Substance: DEXAMETHASONE SODIUM PHOSPHATE
     Dosage: UNK ()
     Route: 065
  259. CLEMASTINE FUMARATE. [Suspect]
     Active Substance: CLEMASTINE FUMARATE
     Dosage: ()
     Route: 065
  260. OMALIZUMAB. [Suspect]
     Active Substance: OMALIZUMAB
     Route: 065
  261. OMALIZUMAB. [Suspect]
     Active Substance: OMALIZUMAB
     Route: 065
  262. OMALIZUMAB. [Suspect]
     Active Substance: OMALIZUMAB
     Route: 065
  263. OMALIZUMAB. [Suspect]
     Active Substance: OMALIZUMAB
     Dosage: UNK ()
     Route: 065
  264. ZYRTEC [Suspect]
     Active Substance: CETIRIZINE HYDROCHLORIDE
     Indication: URTICARIA CHRONIC
     Dosage: ()
     Route: 065
  265. ZYRTEC [Suspect]
     Active Substance: CETIRIZINE HYDROCHLORIDE
     Dosage: UNK ()
     Route: 065
  266. ZYRTEC [Suspect]
     Active Substance: CETIRIZINE HYDROCHLORIDE
     Dosage: ()
     Route: 065
  267. CLARITINE [Suspect]
     Active Substance: LORATADINE
     Dosage: UNK ()
     Route: 065

REACTIONS (7)
  - Drug hypersensitivity [Unknown]
  - Angioedema [Recovered/Resolved]
  - Urticaria [Recovering/Resolving]
  - Product use in unapproved indication [Unknown]
  - Drug reaction with eosinophilia and systemic symptoms [Recovered/Resolved]
  - Allergy test positive [Recovering/Resolving]
  - Maternal exposure during pregnancy [Unknown]
